FAERS Safety Report 9518621 (Version 1)
Quarter: 2013Q3

REPORT INFORMATION
  Report Type: Spontaneous
  Country: US (occurrence: None)
  Receive Date: 20130910
  Receipt Date: 20130910
  Transmission Date: 20140515
  Serious: Yes (Hospitalization)
  Sender: FDA-Public Use
  Company Number: None

PATIENT
  Age: 72 Year
  Sex: Male
  Weight: 87.1 kg

DRUGS (1)
  1. GLEEVEC [Suspect]
     Dosage: GLEEVEC 400MG QD PO
     Route: 048
     Dates: start: 20130715

REACTIONS (2)
  - Vomiting [None]
  - Swollen tongue [None]
